FAERS Safety Report 8934749 (Version 1)
Quarter: 2012Q4

REPORT INFORMATION
  Report Type: 
  Country: GB (occurrence: GB)
  Receive Date: 20121129
  Receipt Date: 20121129
  Transmission Date: 20130627
  Serious: Yes (Hospitalization)
  Sender: FDA-Public Use
  Company Number: GB-WATSON-2012-20654

PATIENT
  Age: 73 Year
  Sex: Male

DRUGS (3)
  1. IBUPROFEN [Suspect]
     Indication: PAIN
     Dosage: 400 mg, tid, Dosage Form: Unspecified
     Route: 048
     Dates: end: 20031205
  2. TRAMADOL [Concomitant]
     Indication: PRODUCT USED FOR UNKNOWN INDICATION
     Dosage: 50 mg, tid, Dosage Form: Unknown
     Route: 048
  3. VENLAFAXINE [Concomitant]
     Indication: PRODUCT USED FOR UNKNOWN INDICATION
     Dosage: 75 mg, daily, Dosage Form: Unknown
     Route: 048

REACTIONS (3)
  - Haematemesis [Recovering/Resolving]
  - Hiatus hernia [Recovering/Resolving]
  - Duodenal ulcer [Recovering/Resolving]
